FAERS Safety Report 8455760-X (Version None)
Quarter: 2012Q2

REPORT INFORMATION
  Report Type: 
  Country: None (occurrence: None)
  Receive Date: 20120323
  Receipt Date: 20110914
  Transmission Date: 20120825
  Serious: Yes (Other)
  Sender: FDA-Public Use
  Company Number: 163-21880-11092212

PATIENT
  Age: 88 Year
  Sex: Male

DRUGS (2)
  1. REVLIMID [Suspect]
     Indication: MULTIPLE MYELOMA
     Dosage: 10 MG, 1 IN 1 D, PO : 5 MG, DAILY FOR 28 DAYS, PO
     Route: 048
     Dates: start: 20081101
  2. REVLIMID [Suspect]
     Indication: MULTIPLE MYELOMA
     Dosage: 10 MG, 1 IN 1 D, PO : 5 MG, DAILY FOR 28 DAYS, PO
     Route: 048
     Dates: start: 20101001

REACTIONS (3)
  - TRANSIENT ISCHAEMIC ATTACK [None]
  - BLINDNESS UNILATERAL [None]
  - DIARRHOEA [None]
